FAERS Safety Report 6679289-4 (Version None)
Quarter: 2010Q2

REPORT INFORMATION
  Report Type: 
  Country: None (occurrence: None)
  Receive Date: 20100408
  Receipt Date: 20090725
  Transmission Date: 20101027
  Serious: No
  Sender: FDA-Public Use
  Company Number: 2009-00498

PATIENT
  Age: 63 Year
  Sex: Female
  Weight: 73.9363 kg

DRUGS (4)
  1. ZICAM ALLERGY RELIEF GEL SWABS [Suspect]
     Dosage: QID - 3 DAYS
     Dates: start: 20080325, end: 20080328
  2. ADVAIR DISKUS 100/50 [Concomitant]
  3. SINGULAIR [Concomitant]
  4. DITROPAN [Concomitant]

REACTIONS (2)
  - AGEUSIA [None]
  - ANOSMIA [None]
